FAERS Safety Report 22126880 (Version 1)
Quarter: 2023Q1

REPORT INFORMATION
  Report Type: Spontaneous
  Country: US (occurrence: US)
  Receive Date: 20230322
  Receipt Date: 20230322
  Transmission Date: 20230417
  Serious: No
  Sender: FDA-Public Use
  Company Number: US-ABBVIE-4320541

PATIENT
  Age: 60 Year
  Sex: Female
  Weight: 81.646 kg

DRUGS (1)
  1. HUMIRA [Suspect]
     Active Substance: ADALIMUMAB
     Indication: Uveitis
     Route: 058
     Dates: start: 2021

REACTIONS (2)
  - Injection site injury [Recovered/Resolved]
  - Device use issue [Not Recovered/Not Resolved]

NARRATIVE: CASE EVENT DATE: 20230224
